APPROVED DRUG PRODUCT: ZERIT
Active Ingredient: STAVUDINE
Strength: 15MG **Federal Register determination that product was not discontinued or withdrawn for safety or effectiveness reasons**
Dosage Form/Route: CAPSULE;ORAL
Application: N020412 | Product #002
Applicant: BRISTOL MYERS SQUIBB CO
Approved: Jun 24, 1994 | RLD: Yes | RS: No | Type: DISCN